FAERS Safety Report 4654987-2 (Version None)
Quarter: 2005Q2

REPORT INFORMATION
  Report Type: 
  Country: None (occurrence: None)
  Receive Date: 20050506
  Receipt Date: 20050330
  Transmission Date: 20051028
  Serious: Yes (Hospitalization)
  Sender: FDA-Public Use
  Company Number: MY-MERCK-0503MYS00058

PATIENT
  Age: 70 Year
  Sex: Female

DRUGS (2)
  1. PRIMAXIN [Suspect]
     Indication: KIDNEY INFECTION
     Route: 051
     Dates: start: 20050301, end: 20050301
  2. PRIMAXIN [Suspect]
     Route: 051
     Dates: start: 20050301, end: 20050301

REACTIONS (3)
  - EATING DISORDER [None]
  - INSOMNIA [None]
  - LETHARGY [None]
